FAERS Safety Report 14760368 (Version 1)
Quarter: 2018Q2

REPORT INFORMATION
  Report Type: Report from Study
  Country: CN (occurrence: CN)
  Receive Date: 20180414
  Receipt Date: 20180414
  Transmission Date: 20180711
  Serious: Yes (Other)
  Sender: FDA-Public Use
  Company Number: CN-ROCHE-1948603

PATIENT
  Sex: Female
  Weight: 48 kg

DRUGS (1)
  1. AVASTIN [Suspect]
     Active Substance: BEVACIZUMAB
     Indication: COLON CANCER
     Route: 041
     Dates: start: 20170113

REACTIONS (6)
  - Gait disturbance [Unknown]
  - Localised oedema [Unknown]
  - Discomfort [Unknown]
  - Ascites [Unknown]
  - Asthenia [Unknown]
  - Coma [Recovering/Resolving]
